FAERS Safety Report 4612475-3 (Version None)
Quarter: 2005Q1

REPORT INFORMATION
  Report Type: 
  Country: None (occurrence: None)
  Receive Date: 20050316
  Receipt Date: 20050316
  Transmission Date: 20050727
  Serious: Yes (Life-Threatening)
  Sender: FDA-Public Use
  Company Number: None

PATIENT
  Age: 68 Year
  Sex: Female
  Weight: 58.9676 kg

DRUGS (2)
  1. BENZOCAINE 10% [Suspect]
     Indication: MUCOSAL INFLAMMATION
     Dosage: RINSE QID
     Route: 048
     Dates: start: 20050225, end: 20050226
  2. METHOTREXATE [Concomitant]

REACTIONS (8)
  - CYANOSIS [None]
  - DRUG TOXICITY [None]
  - DYSPNOEA [None]
  - HAEMORRHAGE [None]
  - LETHARGY [None]
  - MEDICATION ERROR [None]
  - OXYGEN SATURATION DECREASED [None]
  - PALLOR [None]
